FAERS Safety Report 8593081-5 (Version None)
Quarter: 2012Q3

REPORT INFORMATION
  Report Type: 
  Country: None (occurrence: None)
  Receive Date: 20120814
  Receipt Date: 20120809
  Transmission Date: 20120928
  Serious: Yes (Other)
  Sender: FDA-Public Use
  Company Number: BR-GLAXOSMITHKLINE-B0822599A

PATIENT
  Sex: Male
  Weight: 72 kg

DRUGS (3)
  1. PROPAFENONE HCL [Suspect]
     Indication: ATRIAL FIBRILLATION
     Dosage: 300MG THREE TIMES PER DAY
     Route: 048
     Dates: start: 20120601
  2. LOSARTAN POTASSIUM [Concomitant]
     Indication: HYPERTENSION
     Dosage: 12.5MG IN THE MORNING
     Route: 048
     Dates: start: 20080101
  3. INDAPAMIDE [Concomitant]
     Indication: HYPERTENSION
     Dosage: 1.5MG IN THE MORNING
     Route: 048
     Dates: start: 20080101

REACTIONS (1)
  - HALLUCINATION, AUDITORY [None]
